FAERS Safety Report 10207142 (Version 1)
Quarter: 2014Q2

REPORT INFORMATION
  Report Type: Spontaneous
  Country: US (occurrence: None)
  Receive Date: 20140528
  Receipt Date: 20140528
  Transmission Date: 20141212
  Serious: No
  Sender: FDA-Public Use
  Company Number: None

PATIENT
  Age: 60 Year
  Sex: Female
  Weight: 61.24 kg

DRUGS (1)
  1. LEVOTHYROXINE [Suspect]
     Indication: THYROID DISORDER
     Dates: start: 20140425, end: 20140510

REACTIONS (6)
  - Diarrhoea [None]
  - Headache [None]
  - Dizziness [None]
  - Oedema mouth [None]
  - Faeces discoloured [None]
  - Visual impairment [None]
